FAERS Safety Report 8477592-9 (Version None)
Quarter: 2012Q2

REPORT INFORMATION
  Report Type: 
  Country: None (occurrence: None)
  Receive Date: 20120618
  Receipt Date: 20120608
  Transmission Date: 20120825
  Serious: Yes (Hospitalization)
  Sender: FDA-Public Use
  Company Number: 2012SP028315

PATIENT
  Age: 66 Year
  Sex: Male
  Weight: 76 kg

DRUGS (16)
  1. TELAVIC [Suspect]
     Indication: HEPATITIS C
     Dosage: 2250 MG, QD, PO
     Route: 048
     Dates: start: 20120517
  2. TELAVIC [Suspect]
     Indication: HEPATITIS C
     Dosage: 2250 MG, QD, PO
     Route: 048
     Dates: start: 20120322, end: 20120510
  3. TPN ELECTROLYTES IN PLASTIC CONTAINER [Concomitant]
  4. HIRUDOID SOFT [Concomitant]
  5. PEG-INTRON [Suspect]
     Indication: HEPATITIS C
     Dosage: 1.5 MCG/KG, QW, SC
     Route: 058
     Dates: start: 20120322
  6. URSO 250 [Concomitant]
  7. ALLOPURINOL [Concomitant]
  8. REBETOL [Suspect]
     Indication: HEPATITIS C
     Dosage: 800;600;400;200 MG, QD, PO
     Route: 048
     Dates: start: 20120419, end: 20120425
  9. REBETOL [Suspect]
     Indication: HEPATITIS C
     Dosage: 800;600;400;200 MG, QD, PO
     Route: 048
     Dates: start: 20120426, end: 20120510
  10. REBETOL [Suspect]
     Indication: HEPATITIS C
     Dosage: 800;600;400;200 MG, QD, PO
     Route: 048
     Dates: start: 20120322, end: 20120418
  11. REBETOL [Suspect]
     Indication: HEPATITIS C
     Dosage: 800;600;400;200 MG, QD, PO
     Route: 048
     Dates: start: 20120517
  12. TALION [Concomitant]
  13. ANTEBATE [Concomitant]
  14. HOCHUEKKITO [Concomitant]
  15. LANSOPRAZOLE [Concomitant]
  16. NORVASC [Concomitant]

REACTIONS (5)
  - MALAISE [None]
  - RASH [None]
  - DECREASED APPETITE [None]
  - GASTRITIS [None]
  - PRURITUS [None]
